FAERS Safety Report 5509414-X (Version None)
Quarter: 2007Q4

REPORT INFORMATION
  Report Type: 
  Country: None (occurrence: None)
  Receive Date: 20071107
  Receipt Date: 20071101
  Transmission Date: 20080405
  Serious: Yes (Other)
  Sender: FDA-Public Use
  Company Number: US-PFIZER INC-2006011735

PATIENT
  Sex: Female
  Weight: 57.2 kg

DRUGS (6)
  1. CLINDAMYCIN PALMITATE HYDROCHLORIDE GRANULES [Suspect]
     Indication: TOOTH ABSCESS
     Route: 065
     Dates: start: 20060120, end: 20060120
  2. SYNTHROID [Concomitant]
     Route: 065
  3. INSULIN [Concomitant]
     Route: 065
  4. NITROGLYCERIN [Concomitant]
     Route: 065
  5. CHLOR-TRIMETON [Concomitant]
  6. ALBUTEROL [Concomitant]

REACTIONS (2)
  - DYSPNOEA [None]
  - SYNCOPE [None]
